FAERS Safety Report 23040047 (Version 2)
Quarter: 2023Q4

REPORT INFORMATION
  Report Type: Spontaneous
  Country: FR (occurrence: FR)
  Receive Date: 20231006
  Receipt Date: 20231219
  Transmission Date: 20240110
  Serious: Yes (Other)
  Sender: FDA-Public Use
  Company Number: FR-SA-2023SA253370

PATIENT

DRUGS (5)
  1. CYCLOPENTOLATE [Suspect]
     Active Substance: CYCLOPENTOLATE
     Indication: Product used for unknown indication
     Dosage: UNK
     Route: 065
  2. CYAMEMAZINE [Suspect]
     Active Substance: CYAMEMAZINE
     Indication: Personality disorder
     Dosage: 20 DROPS IN THE MORNING (20 MG), 10 DROPS AT NOON (10 MG) AND 10 DROPS IN THE EVENING (10 MG),
     Route: 065
  3. SERTRALINE HYDROCHLORIDE [Concomitant]
     Active Substance: SERTRALINE HYDROCHLORIDE
     Indication: Bipolar I disorder
     Dosage: 3 DF, QD
     Route: 048
  4. HERBALS\SPIRULINA [Concomitant]
     Active Substance: HERBALS\SPIRULINA
     Indication: Product used for unknown indication
     Dosage: 3 DF, QD
     Route: 048
  5. VITAMIN C [Concomitant]
     Active Substance: ASCORBIC ACID
     Indication: Product used for unknown indication
     Dosage: 1 DOSAGE FORM, QD
     Route: 048

REACTIONS (6)
  - Delirium [Recovered/Resolved]
  - Product use issue [Unknown]
  - Delusion [Unknown]
  - Poor quality product administered [Unknown]
  - Fatigue [Unknown]
  - Nausea [Recovered/Resolved]
